FAERS Safety Report 10059603 (Version 2)
Quarter: 2014Q2

REPORT INFORMATION
  Report Type: Report from Study
  Country: US (occurrence: US)
  Receive Date: 20140404
  Receipt Date: 20140404
  Transmission Date: 20141212
  Serious: Yes (Hospitalization, Other)
  Sender: FDA-Public Use
  Company Number: US-ABBVIE-14P-163-1217823-00

PATIENT
  Sex: Male
  Weight: 81.72 kg

DRUGS (13)
  1. HUMIRA [Suspect]
     Indication: COLITIS ULCERATIVE
     Dates: start: 201210, end: 201311
  2. HUMIRA [Suspect]
     Dates: start: 201401
  3. REMICADE [Suspect]
     Indication: PSORIASIS
     Dates: start: 2010, end: 2012
  4. ROWASA [Concomitant]
     Indication: COLITIS ULCERATIVE
  5. ASACOL [Concomitant]
     Indication: COLITIS ULCERATIVE
  6. PREDNISONE [Concomitant]
     Indication: COLITIS ULCERATIVE
  7. PREDNISONE [Concomitant]
     Indication: PERICARDITIS
  8. DOXYCYCLINE [Concomitant]
     Indication: ACNE
  9. DOXYCYCLINE [Concomitant]
     Indication: CELLULITIS
  10. DOXYCYCLINE [Concomitant]
     Indication: PROPHYLAXIS
  11. DOXYCYCLINE [Concomitant]
     Indication: PROPHYLAXIS
  12. OMEPRAZOLE [Concomitant]
     Indication: GASTRITIS PROPHYLAXIS
  13. ALENDRONATE [Concomitant]
     Indication: PRODUCT USED FOR UNKNOWN INDICATION

REACTIONS (5)
  - Cardiac hypertrophy [Not Recovered/Not Resolved]
  - Chest pain [Recovered/Resolved]
  - Pericarditis [Recovered/Resolved with Sequelae]
  - Crohn^s disease [Recovered/Resolved]
  - Therapeutic response changed [Not Recovered/Not Resolved]
